FAERS Safety Report 6056473-4 (Version None)
Quarter: 2009Q1

REPORT INFORMATION
  Report Type: 
  Country: None (occurrence: None)
  Receive Date: 20090129
  Receipt Date: 20090119
  Transmission Date: 20090719
  Serious: Yes (Other)
  Sender: FDA-Public Use
  Company Number: PHHY2009FR01968

PATIENT

DRUGS (1)
  1. ACLASTA [Suspect]
     Dosage: UNK
     Dates: start: 20080701

REACTIONS (3)
  - ASTHENIA [None]
  - LOSS OF CONSCIOUSNESS [None]
  - MONOPARESIS [None]
